FAERS Safety Report 11384496 (Version 1)
Quarter: 2015Q3

REPORT INFORMATION
  Report Type: Spontaneous
  Country: US (occurrence: US)
  Receive Date: 20150811
  Receipt Date: 20150811
  Transmission Date: 20151125
  Serious: No
  Sender: FDA-Public Use
  Company Number: US-ELI_LILLY_AND_COMPANY-US201103003192

PATIENT
  Age: 68 Year
  Sex: Male

DRUGS (5)
  1. CIALIS [Suspect]
     Active Substance: TADALAFIL
     Indication: ERECTILE DYSFUNCTION
     Dosage: 2.5 MG, UNKNOWN
  2. ATENOLOL. [Concomitant]
     Active Substance: ATENOLOL
  3. SIMVASTATIN. [Concomitant]
     Active Substance: SIMVASTATIN
  4. CIALIS [Suspect]
     Active Substance: TADALAFIL
     Dosage: 5 MG, UNKNOWN
  5. LISINOPRIL. [Concomitant]
     Active Substance: LISINOPRIL

REACTIONS (2)
  - Drug ineffective [Unknown]
  - Inappropriate schedule of drug administration [Unknown]
